FAERS Safety Report 4441504-5 (Version None)
Quarter: 2004Q3

REPORT INFORMATION
  Report Type: 
  Country: None (occurrence: None)
  Receive Date: 20040728
  Receipt Date: 20040407
  Transmission Date: 20050211
  Serious: No
  Sender: FDA-Public Use
  Company Number: USA040464373

PATIENT
  Sex: Male

DRUGS (3)
  1. STRATTERA [Suspect]
     Indication: ATTENTION DEFICIT/HYPERACTIVITY DISORDER
     Dosage: 40 MG DAY
     Dates: start: 20040101
  2. STRATTERA [Suspect]
     Indication: BIPOLAR DISORDER
     Dosage: 40 MG DAY
     Dates: start: 20040101
  3. SEROQUEL [Concomitant]

REACTIONS (1)
  - TESTICULAR PAIN [None]
